FAERS Safety Report 18581081 (Version 2)
Quarter: 2020Q4

REPORT INFORMATION
  Report Type: Spontaneous
  Country: US (occurrence: US)
  Receive Date: 20201204
  Receipt Date: 20201210
  Transmission Date: 20210114
  Serious: No
  Sender: FDA-Public Use
  Company Number: US-PFIZER INC-2018426447

PATIENT
  Age: 60 Year
  Sex: Female

DRUGS (3)
  1. LYRICA [Suspect]
     Active Substance: PREGABALIN
     Dosage: 225 MG, 3X/DAY (75 MG 3 TABLETS, 3 TIMES A DAY)
  2. LYRICA [Suspect]
     Active Substance: PREGABALIN
     Indication: NECK PAIN
     Dosage: 300 MG, 3X/DAY (75MG 4 TABLETS, 3 TIMES A DAY)
  3. LYRICA [Suspect]
     Active Substance: PREGABALIN
     Dosage: 200 MG, 3X/DAY
     Dates: start: 201602

REACTIONS (2)
  - Product label issue [Unknown]
  - Intentional overdose [Unknown]
